FAERS Safety Report 24020415 (Version 1)
Quarter: 2024Q2

REPORT INFORMATION
  Report Type: Spontaneous
  Country: US (occurrence: None)
  Receive Date: 20240627
  Receipt Date: 20240627
  Transmission Date: 20240716
  Serious: Yes (Other)
  Sender: FDA-Public Use
  Company Number: None

PATIENT
  Age: 75 Year
  Sex: Female
  Weight: 92.25 kg

DRUGS (3)
  1. BRUKINSA [Suspect]
     Active Substance: ZANUBRUTINIB
     Indication: Mantle cell lymphoma
     Dosage: 160 MG TWICE A DAY ORAL
     Route: 048
     Dates: start: 20240524, end: 20240611
  2. GAZYVA [Suspect]
     Active Substance: OBINUTUZUMAB
     Dates: start: 20240606, end: 20240606
  3. CALQUENCE [Suspect]
     Active Substance: ACALABRUTINIB
     Dates: start: 20240403, end: 20240403

REACTIONS (7)
  - Muscle spasms [None]
  - Chest pain [None]
  - Back pain [None]
  - Chest discomfort [None]
  - Dyspnoea [None]
  - Flushing [None]
  - Therapy interrupted [None]

NARRATIVE: CASE EVENT DATE: 20240610
